FAERS Safety Report 10177881 (Version 3)
Quarter: 2014Q2

REPORT INFORMATION
  Report Type: Spontaneous
  Country: SE (occurrence: SE)
  Receive Date: 20140516
  Receipt Date: 20140604
  Transmission Date: 20141212
  Serious: Yes (Hospitalization, Disabling, Congenital Anomaly)
  Sender: FDA-Public Use
  Company Number: SE-ABBVIE-06P-150-0332222-00

PATIENT
  Sex: Male

DRUGS (1)
  1. ERGENYL RETARD [Suspect]
     Indication: MATERNAL EXPOSURE TIMING UNSPECIFIED

REACTIONS (5)
  - Autism [Unknown]
  - Mental retardation [Unknown]
  - Attention deficit/hyperactivity disorder [Unknown]
  - Epilepsy [Unknown]
  - Foetal exposure during pregnancy [Unknown]
